FAERS Safety Report 21654594 (Version 1)
Quarter: 2022Q4

REPORT INFORMATION
  Report Type: Spontaneous
  Country: BR (occurrence: BR)
  Receive Date: 20221129
  Receipt Date: 20221129
  Transmission Date: 20230112
  Serious: Yes (Other)
  Sender: FDA-Public Use
  Company Number: BR-NOVOPROD-982611

PATIENT
  Age: 34 Year
  Sex: Male
  Weight: 79.8 kg

DRUGS (6)
  1. TRESIBA [Suspect]
     Active Substance: INSULIN DEGLUDEC
     Dosage: 20 IU
     Dates: start: 20210712
  2. TRESIBA [Suspect]
     Active Substance: INSULIN DEGLUDEC
     Dosage: 24 IU
  3. TRESIBA [Suspect]
     Active Substance: INSULIN DEGLUDEC
     Indication: Latent autoimmune diabetes in adults
     Dosage: UNK
     Dates: start: 20190625
  4. FIASP [Suspect]
     Active Substance: INSULIN ASPART
     Dosage: 22 IU, QD (8-8-6 IU)
     Dates: start: 20210712
  5. FIASP [Suspect]
     Active Substance: INSULIN ASPART
     Indication: Latent autoimmune diabetes in adults
     Dosage: 19 IU, QD (8-6-5 IU)
     Dates: start: 20210712
  6. TESTOSTERONE UNDECYLENATE [Concomitant]
     Dosage: 250 MG/ML (EVERY 3 WEEKS)

REACTIONS (3)
  - Thyroid neoplasm [Recovered/Resolved with Sequelae]
  - Hypoglycaemia [Unknown]
  - Hyperglycaemia [Unknown]
